FAERS Safety Report 16183500 (Version 2)
Quarter: 2022Q1

REPORT INFORMATION
  Report Type: Spontaneous
  Country: CA (occurrence: CA)
  Receive Date: 20190411
  Receipt Date: 20220128
  Transmission Date: 20220423
  Serious: Yes (Hospitalization)
  Sender: FDA-Public Use
  Company Number: CA-009507513-1904CAN003792

PATIENT
  Age: 65 Year
  Sex: Male
  Weight: 68 kg

DRUGS (1)
  1. JANUVIA [Suspect]
     Active Substance: SITAGLIPTIN PHOSPHATE
     Indication: Type 2 diabetes mellitus
     Dosage: 100 MILLIGRAM, QD(1 EVERY 1 DAY)
     Route: 048
     Dates: start: 20130904, end: 20180115

REACTIONS (12)
  - Asthenia [Recovering/Resolving]
  - Decreased appetite [Recovering/Resolving]
  - Disturbance in attention [Recovering/Resolving]
  - Electrolyte imbalance [Recovering/Resolving]
  - Gastrointestinal tube insertion [Recovering/Resolving]
  - Mental status changes [Recovering/Resolving]
  - Mood swings [Recovering/Resolving]
  - Nausea [Recovering/Resolving]
  - Pancreatitis [Recovering/Resolving]
  - Transfusion [Recovering/Resolving]
  - Vomiting [Recovering/Resolving]
  - Weight decreased [Recovering/Resolving]

NARRATIVE: CASE EVENT DATE: 20180114
